FAERS Safety Report 4305795-3 (Version None)
Quarter: 2004Q1

REPORT INFORMATION
  Report Type: 
  Country: None (occurrence: None)
  Receive Date: 20040225
  Receipt Date: 20040219
  Transmission Date: 20041129
  Serious: No
  Sender: FDA-Public Use
  Company Number: TAP2004Q00221

PATIENT
  Age: 86 Year
  Sex: Female
  Weight: 86.1834 kg

DRUGS (6)
  1. PREVACID [Suspect]
     Indication: GASTROOESOPHAGEAL REFLUX DISEASE
     Dosage: 30 MG
     Dates: start: 20040207
  2. CENTRUM SILVER (CENTRUM SILVER) [Concomitant]
  3. VITAMIN B6 [Concomitant]
  4. VITAMIN C (ASCORBIC ACID) [Concomitant]
  5. LUNGS SUPPORT [SIC] (HERBAL PREPARATION) [Concomitant]
  6. EC GARLIC (GARLIC) [Concomitant]

REACTIONS (2)
  - DIARRHOEA [None]
  - VISION BLURRED [None]
